FAERS Safety Report 5808519-3 (Version None)
Quarter: 2008Q3

REPORT INFORMATION
  Report Type: 
  Country: None (occurrence: None)
  Receive Date: 20080710
  Receipt Date: 20080710
  Transmission Date: 20090109
  Serious: Yes (Other)
  Sender: FDA-Public Use
  Company Number: None

PATIENT
  Age: 56 Year
  Sex: Male
  Weight: 79.3795 kg

DRUGS (2)
  1. CIPRO [Suspect]
     Indication: SINUSITIS
     Dosage: 500 MG TWICE DAILY PO
     Route: 048
     Dates: start: 20080201, end: 20080201
  2. LEVAQUIN [Suspect]
     Indication: CHRONIC SINUSITIS
     Dosage: 750 MG ONCE DAILY PO
     Route: 048
     Dates: start: 20080301, end: 20080301

REACTIONS (2)
  - INFLAMMATION [None]
  - TENDON DISORDER [None]
